FAERS Safety Report 7543288-0 (Version None)
Quarter: 2011Q2

REPORT INFORMATION
  Report Type: 
  Country: None (occurrence: None)
  Receive Date: 20110613
  Receipt Date: 20110603
  Transmission Date: 20111010
  Serious: Yes (Other)
  Sender: FDA-Public Use
  Company Number: PHHY2011IL49450

PATIENT
  Age: 64 Year
  Sex: Male

DRUGS (9)
  1. LERCANIDIPINE [Suspect]
     Dosage: 10 MG, QD EARLY MORNING
  2. AMLODIPINE [Suspect]
     Dosage: 10 MG, QD IN EVENING
  3. ALFUZOSIN HCL [Suspect]
     Dosage: 2.5 MG, QD
  4. LERCANIDIPINE [Suspect]
     Dosage: 10 MG, QD EACH EVENING
  5. LERCANIDIPINE [Suspect]
     Dosage: 10 MG, QD EACH EVENING
  6. ENALAPRIL MALEATE [Suspect]
     Dosage: 20 MG, BID
  7. METOPROLOL SUCCINATE [Suspect]
     Dosage: 200 MG, QD IN MORNING
  8. LOSARTAN POTASSIUM/HYDROCHLOROTHIAZIDE [Suspect]
     Dosage: 1 DF, QD
  9. LERCANIDIPINE [Suspect]
     Dosage: 10 MG, QD WITH BREAKFAST

REACTIONS (2)
  - OEDEMA [None]
  - NOCTURIA [None]
